FAERS Safety Report 8396212-5 (Version None)
Quarter: 2012Q2

REPORT INFORMATION
  Report Type: 
  Country: None (occurrence: None)
  Receive Date: 20120530
  Receipt Date: 20120524
  Transmission Date: 20120825
  Serious: Yes (Other)
  Sender: FDA-Public Use
  Company Number: JP-GLAXOSMITHKLINE-B0804213A

PATIENT

DRUGS (3)
  1. LAMICTAL [Suspect]
     Indication: BIPOLAR DISORDER
     Dosage: 25MG PER DAY
     Route: 048
  2. LODOPIN [Concomitant]
     Route: 048
  3. ABILIFY [Concomitant]
     Route: 048

REACTIONS (3)
  - PARKINSON'S DISEASE [None]
  - BLOOD CREATINE PHOSPHOKINASE INCREASED [None]
  - SALIVARY HYPERSECRETION [None]
